FAERS Safety Report 6312805 (Version 12)
Quarter: 2014Q2

REPORT INFORMATION
  Report Type: Report from Study
  Country: US (occurrence: US)
  Receive Date: 20070515
  Receipt Date: 20140423
  Transmission Date: 20141212
  Serious: Yes (Life-Threatening, Hospitalization, Disabling)
  Sender: FDA-Public Use
  Company Number: US-ROCHE-GNE231989

PATIENT
  Age: 19 Year
  Sex: Female
  Weight: 150.18 kg

DRUGS (24)
  1. OMALIZUMAB [Suspect]
     Indication: ASTHMA
     Dosage: 375 UNK, Q2W
     Route: 058
     Dates: start: 20050126
  2. OMALIZUMAB [Suspect]
     Route: 058
     Dates: start: 20060711
  3. OMALIZUMAB [Suspect]
     Route: 058
     Dates: start: 20060810
  4. OMALIZUMAB [Suspect]
     Route: 058
     Dates: start: 2008
  5. OMALIZUMAB [Suspect]
     Route: 058
     Dates: start: 20061207
  6. OMALIZUMAB [Suspect]
     Route: 058
     Dates: start: 20070220
  7. ALBUTEROL INHALER [Concomitant]
     Indication: ASTHMA
     Dosage: 90 PUFF, UNK, DOSE=90 PUFF
     Route: 065
     Dates: start: 2004
  8. PREVACID [Concomitant]
     Indication: GASTROOESOPHAGEAL REFLUX DISEASE
     Dosage: 30 MG, UNK
     Route: 065
     Dates: start: 2004
  9. PULMICORT [Concomitant]
     Indication: PRODUCT USED FOR UNKNOWN INDICATION
     Dosage: 200 PUFF, UNK, DOSE=200 PUFF
     Route: 065
     Dates: start: 20060926
  10. CLARITIN [Concomitant]
     Indication: PRODUCT USED FOR UNKNOWN INDICATION
  11. RHINOCORT [Concomitant]
     Indication: PRODUCT USED FOR UNKNOWN INDICATION
  12. ADVAIR [Concomitant]
     Indication: PRODUCT USED FOR UNKNOWN INDICATION
     Dosage: UNK, UNK
     Route: 065
  13. SINGULAIR [Concomitant]
     Indication: PRODUCT USED FOR UNKNOWN INDICATION
  14. ASMANEX [Concomitant]
     Indication: PRODUCT USED FOR UNKNOWN INDICATION
  15. CLARINEX (UNITED STATES) [Concomitant]
     Indication: PRODUCT USED FOR UNKNOWN INDICATION
  16. SPIRIVA [Concomitant]
     Indication: PRODUCT USED FOR UNKNOWN INDICATION
  17. PRENATAL VITAMIN [Concomitant]
     Indication: PREGNANCY
     Route: 048
  18. MOTRIN [Concomitant]
     Indication: PRODUCT USED FOR UNKNOWN INDICATION
     Dosage: 800 MG, TID
     Route: 048
  19. QVAR [Concomitant]
     Indication: ASTHMA
  20. VICODIN [Concomitant]
     Indication: PRODUCT USED FOR UNKNOWN INDICATION
     Dosage: UNK, PRN
     Route: 048
  21. CHROMAGEN FORTE [Concomitant]
     Indication: PRODUCT USED FOR UNKNOWN INDICATION
     Dosage: UNK, QD
     Route: 048
  22. ALBUTEROL NEBULIZER [Concomitant]
     Indication: ASTHMA
  23. KEFLEX [Concomitant]
     Indication: CYSTITIS
     Dosage: 500 MG, UNK
     Route: 048
     Dates: start: 20070404
  24. FLAGYL [Concomitant]
     Indication: SEXUALLY TRANSMITTED DISEASE
     Dosage: 2 G, UNK
     Route: 048
     Dates: start: 20070404

REACTIONS (4)
  - Asthma [Recovered/Resolved]
  - Pre-eclampsia [Unknown]
  - Caesarean section [Unknown]
  - Exposure during pregnancy [Unknown]
